FAERS Safety Report 6577674-2 (Version None)
Quarter: 2010Q1

REPORT INFORMATION
  Report Type: 
  Country: None (occurrence: None)
  Receive Date: 20100211
  Receipt Date: 20100204
  Transmission Date: 20100710
  Serious: Yes (Hospitalization, Other)
  Sender: FDA-Public Use
  Company Number: PHHO2009DE09208

PATIENT
  Sex: Male
  Weight: 80 kg

DRUGS (3)
  1. AMN107 AMN+CAP [Suspect]
     Indication: GASTROINTESTINAL STROMAL TUMOUR
     Dosage: 400 MG, QD
     Route: 048
     Dates: start: 20090331
  2. ASPIRIN [Concomitant]
  3. PLAVIX [Concomitant]

REACTIONS (2)
  - CORONARY ANGIOPLASTY [None]
  - MYOCARDIAL INFARCTION [None]
